FAERS Safety Report 8988150 (Version 2)
Quarter: 2013Q1

REPORT INFORMATION
  Report Type: Report from Study
  Country: GB (occurrence: GB)
  Receive Date: 20121227
  Receipt Date: 20130101
  Transmission Date: 20140127
  Serious: Yes (Hospitalization)
  Sender: FDA-Public Use
  Company Number: GB-ROCHE-1173069

PATIENT
  Age: 72 Year
  Sex: Male

DRUGS (6)
  1. RITUXIMAB [Suspect]
     Indication: MALIGNANT LYMPHOID NEOPLASM
     Dosage: LAST DOSE PRIOR TO SAE: 14/SEP/2012
     Route: 042
     Dates: start: 20120806, end: 20121217
  2. CHLORAMBUCIL [Suspect]
     Indication: MALIGNANT LYMPHOID NEOPLASM
     Dosage: LAST DOSE PRIOR TO SAE: 14/SEP/2012
     Route: 048
     Dates: start: 20120808, end: 20121217
  3. FOLIC ACID [Concomitant]
     Route: 065
     Dates: start: 201208
  4. ACICLOVIR [Concomitant]
     Route: 065
     Dates: start: 201208
  5. OMEPRAZOLE [Concomitant]
     Route: 065
     Dates: start: 201208
  6. ALLOPURINOL [Concomitant]
     Route: 065
     Dates: start: 201208

REACTIONS (1)
  - Neutropenic sepsis [Recovering/Resolving]
